FAERS Safety Report 9014479 (Version 1)
Quarter: 2013Q1

REPORT INFORMATION
  Report Type: Spontaneous
  Country: FR (occurrence: FR)
  Receive Date: 20130115
  Receipt Date: 20130115
  Transmission Date: 20140127
  Serious: Yes (Hospitalization)
  Sender: FDA-Public Use
  Company Number: FR-GLAXOSMITHKLINE-B0857096A

PATIENT
  Sex: Male

DRUGS (13)
  1. DEROXAT [Suspect]
     Indication: DEMENTIA
     Route: 048
     Dates: start: 2010, end: 20121017
  2. ARICEPT [Suspect]
     Indication: HALLUCINATION
     Route: 048
     Dates: start: 2010, end: 20121017
  3. ATARAX [Suspect]
     Indication: PRODUCT USED FOR UNKNOWN INDICATION
     Route: 048
     Dates: start: 20101112, end: 20121017
  4. VALDOXAN [Concomitant]
     Indication: DEMENTIA
     Route: 065
     Dates: start: 2010
  5. ALPRAZOLAM [Concomitant]
     Indication: DEMENTIA
     Route: 065
     Dates: start: 2010
  6. SINEMET [Concomitant]
     Route: 065
     Dates: start: 2011
  7. AVODART [Concomitant]
     Route: 065
  8. FORLAX [Concomitant]
     Route: 065
  9. SPIGELIA EXTRACT [Concomitant]
     Route: 065
  10. HOMEOPATHY [Concomitant]
     Route: 065
  11. AUGMENTIN [Concomitant]
     Indication: LUNG DISORDER
     Dosage: 1G THREE TIMES PER DAY
     Route: 065
     Dates: end: 20121027
  12. OXYGEN THERAPY [Concomitant]
     Route: 065
  13. EXELON [Concomitant]
     Route: 065
     Dates: start: 201209

REACTIONS (3)
  - Abnormal behaviour [Recovered/Resolved]
  - Agitation [Recovered/Resolved]
  - Confusional state [Recovered/Resolved]
